FAERS Safety Report 14621707 (Version 2)
Quarter: 2018Q2

REPORT INFORMATION
  Report Type: Spontaneous
  Country: US (occurrence: US)
  Receive Date: 20180310
  Receipt Date: 20180407
  Transmission Date: 20180711
  Serious: No
  Sender: FDA-Public Use
  Company Number: US-ASTRAZENECA-2018SE19875

PATIENT
  Age: 22763 Day
  Sex: Female
  Weight: 86.2 kg

DRUGS (4)
  1. SYMBICORT [Suspect]
     Active Substance: BUDESONIDE\FORMOTEROL FUMARATE DIHYDRATE
     Indication: DYSPNOEA
     Dosage: 80/4.5 MICROGRAMS, TWO PUFFS TWICE DAILY
     Route: 055
  2. VENTOLIN [Concomitant]
     Active Substance: ALBUTEROL SULFATE
     Indication: DYSPNOEA
     Dosage: AS REQUIRED
     Route: 055
  3. MUCINEX EXTENDED TABS [Concomitant]
     Indication: PRODUCTIVE COUGH
     Dosage: AS REQUIRED
     Route: 048
  4. SYMBICORT [Suspect]
     Active Substance: BUDESONIDE\FORMOTEROL FUMARATE DIHYDRATE
     Indication: ASTHMA
     Dosage: 80/4.5 MICROGRAMS, TWO PUFFS TWICE DAILY
     Route: 055

REACTIONS (7)
  - Intentional product misuse [Not Recovered/Not Resolved]
  - Device issue [Unknown]
  - Gastrooesophageal reflux disease [Not Recovered/Not Resolved]
  - Incorrect dose administered [Not Recovered/Not Resolved]
  - Dyspnoea [Unknown]
  - Visual acuity reduced [Not Recovered/Not Resolved]
  - Anxiety [Not Recovered/Not Resolved]

NARRATIVE: CASE EVENT DATE: 20180211
